FAERS Safety Report 8562269-1 (Version None)
Quarter: 2012Q3

REPORT INFORMATION
  Report Type: 
  Country: None (occurrence: None)
  Receive Date: 20120802
  Receipt Date: 20120712
  Transmission Date: 20120928
  Serious: No
  Sender: FDA-Public Use
  Company Number: US-AMGEN-USASP2012043640

PATIENT
  Age: 57 Year
  Sex: Female

DRUGS (1)
  1. ENBREL [Suspect]
     Indication: PSORIATIC ARTHROPATHY
     Dosage: 50 MG, QWK
     Dates: start: 20120130

REACTIONS (6)
  - FATIGUE [None]
  - PSORIATIC ARTHROPATHY [None]
  - NODULE [None]
  - MALAISE [None]
  - PAIN [None]
  - IMPAIRED HEALING [None]
